FAERS Safety Report 7933385-X (Version None)
Quarter: 2011Q4

REPORT INFORMATION
  Report Type: 
  Country: None (occurrence: None)
  Receive Date: 20111122
  Receipt Date: 20111122
  Transmission Date: 20120403
  Serious: No
  Sender: FDA-Public Use
  Company Number: None

PATIENT
  Age: 21 Year
  Sex: Female
  Weight: 47.627 kg

DRUGS (1)
  1. NUVARING [Suspect]
     Indication: BLOOD OESTROGEN DECREASED
     Dosage: 1 RING
     Route: 067
     Dates: start: 20111114, end: 20111121

REACTIONS (1)
  - MIDDLE INSOMNIA [None]
